FAERS Safety Report 22640050 (Version 1)
Quarter: 2023Q2

REPORT INFORMATION
  Report Type: Report from Study
  Country: US (occurrence: US)
  Receive Date: 20230626
  Receipt Date: 20230626
  Transmission Date: 20230722
  Serious: No
  Sender: FDA-Public Use
  Company Number: US-002147023-NVSC2023US140385

PATIENT
  Sex: Male

DRUGS (1)
  1. METHOTREXATE [Suspect]
     Active Substance: METHOTREXATE
     Indication: Product used for unknown indication
     Dosage: UNK
     Route: 065

REACTIONS (12)
  - Mean cell volume increased [Unknown]
  - Mean cell haemoglobin increased [Unknown]
  - Red cell distribution width increased [Unknown]
  - Blood glucose increased [Unknown]
  - Blood urea nitrogen/creatinine ratio decreased [Unknown]
  - Haemoglobin increased [Unknown]
  - Aspartate aminotransferase increased [Unknown]
  - Blood alkaline phosphatase increased [Unknown]
  - Platelet count decreased [Unknown]
  - Blood bilirubin increased [Unknown]
  - Glycosylated haemoglobin increased [Unknown]
  - Drug ineffective [Unknown]
